FAERS Safety Report 7325332-9 (Version None)
Quarter: 2011Q1

REPORT INFORMATION
  Report Type: 
  Country: None (occurrence: None)
  Receive Date: 20110302
  Receipt Date: 20100826
  Transmission Date: 20110831
  Serious: Yes (Hospitalization)
  Sender: FDA-Public Use
  Company Number: US-BAYER-201010414NA

PATIENT
  Sex: Female
  Weight: 63.636 kg

DRUGS (6)
  1. YAZ [Suspect]
     Indication: PRODUCT USED FOR UNKNOWN INDICATION
     Dates: start: 20050601, end: 20070701
  2. AMBIEN [Concomitant]
     Dosage: 10 MG, UNK
  3. ADVAIR DISKUS 100/50 [Concomitant]
     Dates: start: 20040101
  4. YASMIN [Suspect]
     Indication: PRODUCT USED FOR UNKNOWN INDICATION
     Dates: start: 20050601, end: 20070701
  5. YASMIN [Suspect]
     Dosage: UNK
     Dates: start: 20070328, end: 20070618
  6. ALBUTEROL [Concomitant]
     Dates: start: 20040101

REACTIONS (5)
  - DYSPNOEA [None]
  - PULMONARY EMBOLISM [None]
  - PAIN IN EXTREMITY [None]
  - JOINT SWELLING [None]
  - DEEP VEIN THROMBOSIS [None]
